FAERS Safety Report 14919323 (Version 1)
Quarter: 2018Q2

REPORT INFORMATION
  Report Type: Other
  Country: US (occurrence: US)
  Receive Date: 20180521
  Receipt Date: 20180521
  Transmission Date: 20180711
  Serious: Yes (Other)
  Sender: FDA-Public Use
  Company Number: US-ACORDA-ACO_149950_2018

PATIENT
  Age: 54 Year
  Sex: Female

DRUGS (1)
  1. AMPYRA [Suspect]
     Active Substance: DALFAMPRIDINE
     Indication: MYELOPATHY
     Dosage: 10 MG, Q 12 HRS
     Route: 048
     Dates: start: 20180113

REACTIONS (4)
  - Deep vein thrombosis [Unknown]
  - Haemorrhagic cyst [Unknown]
  - Product use in unapproved indication [Unknown]
  - Laboratory test abnormal [Unknown]

NARRATIVE: CASE EVENT DATE: 20180420
